FAERS Safety Report 6814428-3 (Version None)
Quarter: 2010Q3

REPORT INFORMATION
  Report Type: 
  Country: None (occurrence: None)
  Receive Date: 20100702
  Receipt Date: 20100618
  Transmission Date: 20110219
  Serious: Yes (Other)
  Sender: FDA-Public Use
  Company Number: PHHY2010HU38746

PATIENT
  Age: 54 Year
  Sex: Male

DRUGS (7)
  1. GLEEVEC [Suspect]
     Indication: CHRONIC MYELOID LEUKAEMIA
     Dosage: 400 MG, DAILY
     Dates: start: 20090701
  2. DASATINIB [Concomitant]
  3. RITUXIMAB [Concomitant]
  4. BORTEZOMIB [Concomitant]
  5. METHOTREXATE [Concomitant]
  6. ARA-C [Concomitant]
  7. HYDROXYUREA [Concomitant]

REACTIONS (6)
  - BONE MARROW LEUKAEMIC CELL INFILTRATION [None]
  - CHROMOSOME ANALYSIS ABNORMAL [None]
  - LEUKAEMIC INFILTRATION BRAIN [None]
  - LEUKAEMIC INFILTRATION EXTRAMEDULLARY [None]
  - LEUKOCYTOSIS [None]
  - SUBCUTANEOUS NODULE [None]
